FAERS Safety Report 7560170-3 (Version None)
Quarter: 2011Q2

REPORT INFORMATION
  Report Type: 
  Country: None (occurrence: None)
  Receive Date: 20110621
  Receipt Date: 20110503
  Transmission Date: 20111010
  Serious: Yes (Other)
  Sender: FDA-Public Use
  Company Number: A0925577A

PATIENT
  Age: 81 Year
  Sex: Male
  Weight: 63.2 kg

DRUGS (6)
  1. NORVASC [Concomitant]
     Indication: HYPERTENSION
     Route: 048
     Dates: start: 20100101
  2. METFORMIN HCL [Concomitant]
     Dosage: 500MG TWICE PER DAY
  3. JANUVIA [Concomitant]
     Dosage: 100MG PER DAY
  4. CARVEDILOL [Suspect]
     Indication: HYPERTENSION
     Dosage: 6.25MG TWICE PER DAY
     Route: 048
     Dates: start: 20110401
  5. COREG [Suspect]
     Indication: HYPERTENSION
     Dosage: 6.25MG TWICE PER DAY
     Route: 048
     Dates: start: 20100101
  6. OMEPRAZOLE [Concomitant]
     Dosage: 20MG PER DAY

REACTIONS (2)
  - THERAPEUTIC RESPONSE DECREASED [None]
  - DRUG INEFFECTIVE [None]
